FAERS Safety Report 15996122 (Version 2)
Quarter: 2019Q2

REPORT INFORMATION
  Report Type: Spontaneous
  Country: AT (occurrence: AT)
  Receive Date: 20190222
  Receipt Date: 20190416
  Transmission Date: 20190711
  Serious: Yes (Death)
  Sender: FDA-Public Use
  Company Number: AT-ACTELION-A-CH2019-186579

PATIENT

DRUGS (3)
  1. TREPROSTINIL. [Concomitant]
     Active Substance: TREPROSTINIL
     Indication: PULMONARY ARTERIAL HYPERTENSION
  2. OXYGEN. [Concomitant]
     Active Substance: OXYGEN
  3. BOSENTAN. [Suspect]
     Active Substance: BOSENTAN
     Indication: PULMONARY ARTERIAL HYPERTENSION
     Route: 048

REACTIONS (13)
  - Surgery [Unknown]
  - Hepatotoxicity [Unknown]
  - Infusion site erythema [Unknown]
  - Infusion site reaction [Unknown]
  - Therapeutic response changed [Unknown]
  - Right ventricular failure [Fatal]
  - Diarrhoea [Unknown]
  - Flushing [Unknown]
  - Walking distance test abnormal [Fatal]
  - Haematoma [Unknown]
  - Pain in jaw [Unknown]
  - Infusion site pain [Unknown]
  - Infusion site abscess [Unknown]
